FAERS Safety Report 19063441 (Version 1)
Quarter: 2021Q1

REPORT INFORMATION
  Report Type: Spontaneous
  Country: US (occurrence: US)
  Receive Date: 20210326
  Receipt Date: 20210326
  Transmission Date: 20210420
  Serious: Yes (Other)
  Sender: FDA-Public Use
  Company Number: US-MYLANLABS-2021M1018187

PATIENT
  Age: 73 Year
  Sex: Female

DRUGS (10)
  1. MYCOPHENOLATE MOFETIL. [Suspect]
     Active Substance: MYCOPHENOLATE MOFETIL
     Indication: EXTERNAL EAR DISORDER
  2. ACETIC ACID. [Concomitant]
     Active Substance: ACETIC ACID
     Indication: LICHEN PLANUS
     Dosage: DILUTE ACETIC ACID SOLUTION
     Route: 065
  3. CLOBETASOL [Concomitant]
     Active Substance: CLOBETASOL
     Indication: LICHEN PLANUS
     Dosage: OINTMENT APPLIED TO THE BODY
     Route: 061
  4. ACETIC ACID. [Concomitant]
     Active Substance: ACETIC ACID
     Indication: EXTERNAL EAR DISORDER
  5. HYDROXYCHLOROQUINE [Concomitant]
     Active Substance: HYDROXYCHLOROQUINE
     Indication: LICHEN PLANUS
     Dosage: 400 MILLIGRAM, QD
     Route: 065
  6. FLUOCINOLONE [Concomitant]
     Active Substance: FLUOCINOLONE
     Indication: LICHEN PLANUS
     Dosage: UNK; GEL TO THE GINGIVA
  7. TACROLIMUS. [Suspect]
     Active Substance: TACROLIMUS
     Indication: EXTERNAL EAR DISORDER
  8. DOXYCYCLINE. [Concomitant]
     Active Substance: DOXYCYCLINE
     Indication: LICHEN PLANUS
     Dosage: 20 MILLIGRAM, BID
     Route: 065
  9. MYCOPHENOLATE MOFETIL. [Suspect]
     Active Substance: MYCOPHENOLATE MOFETIL
     Indication: LICHEN PLANUS
     Dosage: 1000 MILLIGRAM, BID
     Route: 065
  10. TACROLIMUS. [Suspect]
     Active Substance: TACROLIMUS
     Indication: LICHEN PLANUS
     Dosage: UNK
     Route: 061

REACTIONS (4)
  - Scar [Recovering/Resolving]
  - Otitis externa [Recovering/Resolving]
  - External ear disorder [Recovering/Resolving]
  - Off label use [Unknown]
